FAERS Safety Report 6456234-8 (Version None)
Quarter: 2009Q4

REPORT INFORMATION
  Report Type: 
  Country: None (occurrence: None)
  Receive Date: 20091125
  Receipt Date: 20091116
  Transmission Date: 20100525
  Serious: Yes (Death)
  Sender: FDA-Public Use
  Company Number: JP-ABBOTT-09P-087-0593767-00

PATIENT
  Age: 82 Year
  Sex: Male

DRUGS (6)
  1. LEUPLIN SR FOR INJECTION [Suspect]
     Indication: PROSTATE CANCER STAGE IV
     Route: 058
     Dates: start: 20070131, end: 20080723
  2. BASEN [Concomitant]
     Indication: HYPERTENSION
     Route: 048
     Dates: end: 20081111
  3. LASIX [Concomitant]
     Indication: DIABETES MELLITUS
     Route: 048
     Dates: end: 20081111
  4. ALOSENN [Concomitant]
     Indication: CONSTIPATION
     Route: 048
     Dates: end: 20081111
  5. MAGNESIUM [Concomitant]
     Indication: CONSTIPATION
     Route: 048
     Dates: end: 20081111
  6. HARNAL D [Concomitant]
     Indication: BENIGN PROSTATIC HYPERPLASIA
     Route: 048
     Dates: end: 20081111

REACTIONS (2)
  - FALL [None]
  - PNEUMONIA [None]
